FAERS Safety Report 14592835 (Version 2)
Quarter: 2018Q2

REPORT INFORMATION
  Report Type: Report from Study
  Country: DE (occurrence: DE)
  Receive Date: 20180302
  Receipt Date: 20180403
  Transmission Date: 20180711
  Serious: Yes (Hospitalization, Disabling)
  Sender: FDA-Public Use
  Company Number: DE-CELGENEUS-DEU-20180206348

PATIENT
  Age: 47 Year
  Sex: Female
  Weight: 66 kg

DRUGS (4)
  1. EPIRUBICIN [Concomitant]
     Active Substance: EPIRUBICIN
     Indication: TRIPLE NEGATIVE BREAST CANCER
     Dosage: 155 MILLIGRAM
     Route: 041
     Dates: start: 20170718
  2. CYCLOPHOSPHAMIDE. [Concomitant]
     Active Substance: CYCLOPHOSPHAMIDE
     Indication: TRIPLE NEGATIVE BREAST CANCER
     Dosage: 1044 MILLIGRAM
     Route: 041
     Dates: start: 20170718
  3. ABRAXANE [Suspect]
     Active Substance: PACLITAXEL
     Indication: TRIPLE NEGATIVE BREAST CANCER
     Dosage: 217 MILLIGRAM
     Route: 041
     Dates: start: 20170421
  4. MEDI4736 (DURVALUMAB) [Suspect]
     Active Substance: DURVALUMAB
     Indication: TRIPLE NEGATIVE BREAST CANCER
     Dosage: 1500 MILLIGRAM
     Route: 041
     Dates: start: 20170407, end: 20170620

REACTIONS (4)
  - Restless legs syndrome [Recovered/Resolved]
  - Neuropathy peripheral [Recovered/Resolved]
  - Fatigue [Recovered/Resolved]
  - Myalgia [Recovered/Resolved]

NARRATIVE: CASE EVENT DATE: 20170530
